FAERS Safety Report 5393418-4 (Version None)
Quarter: 2007Q3

REPORT INFORMATION
  Report Type: 
  Country: None (occurrence: None)
  Receive Date: 20070723
  Receipt Date: 20070712
  Transmission Date: 20080115
  Serious: Yes (Other)
  Sender: FDA-Public Use
  Company Number: NO-JNJFOC-20070601322

PATIENT
  Sex: Female

DRUGS (6)
  1. REMICADE [Suspect]
     Indication: DRUG USE FOR UNKNOWN INDICATION
     Route: 042
  2. METHOTREXATE [Concomitant]
  3. FOLINIC ACID [Concomitant]
  4. LIPITOR [Concomitant]
  5. CALCIGRAN FORTE [Concomitant]
  6. FOSAMAX [Concomitant]

REACTIONS (3)
  - ANXIETY [None]
  - NEUROBORRELIOSIS [None]
  - SUICIDAL IDEATION [None]
